FAERS Safety Report 13112629 (Version 1)
Quarter: 2017Q1

REPORT INFORMATION
  Report Type: Spontaneous
  Country: US (occurrence: US)
  Receive Date: 20170112
  Receipt Date: 20170112
  Transmission Date: 20170428
  Serious: Yes (Other)
  Sender: FDA-Public Use
  Company Number: None

PATIENT
  Age: 49 Year
  Sex: Male
  Weight: 81 kg

DRUGS (8)
  1. FENOFIBRIC ACID DR [Concomitant]
  2. VITAMIN C CHEWABLE [Concomitant]
  3. NATURE MADE SUPER B-COMPLEX [Concomitant]
  4. ASPIRIN. [Concomitant]
     Active Substance: ASPIRIN
  5. IRBESARTAN/HCTZ TB 150/12.5 [Suspect]
     Active Substance: HYDROCHLOROTHIAZIDE\IRBESARTAN
     Indication: HYPERTENSION
     Dosage: ?          QUANTITY:2 TABLET(S);?
     Route: 048
     Dates: start: 20170108, end: 20170111
  6. OMEGA-3 ACIDS [Concomitant]
     Active Substance: OMEGA-3 FATTY ACIDS
  7. ALLEGRA [Concomitant]
     Active Substance: FEXOFENADINE HYDROCHLORIDE
  8. WELCHOL [Concomitant]
     Active Substance: COLESEVELAM HYDROCHLORIDE

REACTIONS (6)
  - Disturbance in attention [None]
  - Miosis [None]
  - Mental status changes [None]
  - Memory impairment [None]
  - Dizziness [None]
  - Impaired driving ability [None]

NARRATIVE: CASE EVENT DATE: 20170108
